FAERS Safety Report 21503792 (Version 1)
Quarter: 2022Q4

REPORT INFORMATION
  Report Type: Spontaneous
  Country: SK (occurrence: SK)
  Receive Date: 20221025
  Receipt Date: 20221025
  Transmission Date: 20230113
  Serious: Yes (Hospitalization, Other)
  Sender: FDA-Public Use
  Company Number: SK-NOVARTISPH-NVSC2022SK238214

PATIENT
  Sex: Male

DRUGS (3)
  1. RUXOLITINIB [Suspect]
     Active Substance: RUXOLITINIB
     Indication: Graft versus host disease
     Dosage: 10 MG, BID (5-0-5, 10-0-10 MG)
     Route: 065
     Dates: start: 20220121
  2. IMATINIB [Suspect]
     Active Substance: IMATINIB
     Indication: Graft versus host disease
     Dosage: 200 MG, QD
     Route: 065
     Dates: start: 202102, end: 202201
  3. METHYLPREDNISOLONE [Concomitant]
     Active Substance: METHYLPREDNISOLONE
     Indication: Product used for unknown indication
     Dosage: 1 MG/KG
     Route: 065

REACTIONS (16)
  - Cholecystitis [Unknown]
  - Lung abscess [Unknown]
  - Clostridium difficile infection [Unknown]
  - Pneumonia [Unknown]
  - Spinal fracture [Unknown]
  - Pseudomonas infection [Unknown]
  - Abdominal infection [Unknown]
  - Sepsis [Unknown]
  - Pneumonitis [Unknown]
  - Subcutaneous emphysema [Unknown]
  - Malnutrition [Unknown]
  - Sarcopenia [Unknown]
  - Bone pain [Unknown]
  - Anaemia [Unknown]
  - Colitis [Unknown]
  - Product use in unapproved indication [Unknown]

NARRATIVE: CASE EVENT DATE: 20210201
